FAERS Safety Report 6435254-3 (Version None)
Quarter: 2009Q4

REPORT INFORMATION
  Report Type: 
  Country: None (occurrence: None)
  Receive Date: 20091110
  Receipt Date: 20091029
  Transmission Date: 20100525
  Serious: Yes (Hospitalization)
  Sender: FDA-Public Use
  Company Number: JP-ELI_LILLY_AND_COMPANY-JP200910007306

PATIENT
  Sex: Male

DRUGS (2)
  1. HUMULIN R [Suspect]
  2. NOVOLIN R [Concomitant]
     Dosage: UNK, UNKNOWN
     Route: 065
     Dates: start: 20090401

REACTIONS (1)
  - HOSPITALISATION [None]
